FAERS Safety Report 16049478 (Version 1)
Quarter: 2019Q1

REPORT INFORMATION
  Report Type: Spontaneous
  Country: HK (occurrence: HK)
  Receive Date: 20190307
  Receipt Date: 20190307
  Transmission Date: 20190418
  Serious: Yes (Other)
  Sender: FDA-Public Use
  Company Number: HK-GILEAD-2019-0395099

PATIENT
  Age: 41 Year
  Sex: Male

DRUGS (1)
  1. GENVOYA [Suspect]
     Active Substance: COBICISTAT\ELVITEGRAVIR\EMTRICITABINE\TENOFOVIR ALAFENAMIDE FUMARATE
     Indication: HIV INFECTION
     Dosage: UNK
     Route: 065
     Dates: start: 201801

REACTIONS (1)
  - Burkitt^s lymphoma [Unknown]

NARRATIVE: CASE EVENT DATE: 201806
